FAERS Safety Report 10006954 (Version 4)
Quarter: 2015Q3

REPORT INFORMATION
  Report Type: Spontaneous
  Country: US (occurrence: None)
  Receive Date: 20140311
  Receipt Date: 20150929
  Transmission Date: 20151125
  Serious: Yes (Hospitalization, Other)
  Sender: FDA-Public Use
  Company Number: 1713747-2014-99920

PATIENT
  Age: 37 Year
  Sex: Female
  Weight: 79.1 kg

DRUGS (3)
  1. DELFLEX WITH DEXTROSE 1.5% [Suspect]
     Active Substance: CALCIUM CHLORIDE\DEXTROSE MONOHYDRATE\MAGNESIUM CHLORIDE\SODIUM CHLORIDE\SODIUM LACTATE
     Indication: CHRONIC KIDNEY DISEASE
     Dosage: 17L OVERNIGHT CYCLING??
     Dates: start: 20131227, end: 20140127
  2. LIBERTY CYCLER [Concomitant]
     Active Substance: DEVICE
  3. LIBERTY CYCLER CASETTE [Concomitant]

REACTIONS (2)
  - Fungal peritonitis [None]
  - Peritonitis [None]

NARRATIVE: CASE EVENT DATE: 20140123
